FAERS Safety Report 13677436 (Version 1)
Quarter: 2017Q2

REPORT INFORMATION
  Report Type: Spontaneous
  Country: US (occurrence: US)
  Receive Date: 20170621
  Receipt Date: 20170621
  Transmission Date: 20170830
  Serious: Yes (Other)
  Sender: FDA-Public Use
  Company Number: None

PATIENT
  Age: 47 Year
  Sex: Female
  Weight: 59.4 kg

DRUGS (6)
  1. APPLE CIDER VINEGAR [Concomitant]
     Active Substance: APPLE CIDER VINEGAR
  2. DIAZAPAM [Concomitant]
  3. L-THEANINE [Concomitant]
     Active Substance: DIETARY SUPPLEMENT
  4. ALPHA LIPOIC ACID [Concomitant]
     Active Substance: .ALPHA.-LIPOIC ACID
  5. VITAMIN B [Concomitant]
     Active Substance: VITAMIN B
  6. KLONOPIN [Suspect]
     Active Substance: CLONAZEPAM
     Indication: INSOMNIA
     Route: 048
     Dates: start: 19950602

REACTIONS (2)
  - Neuralgia [None]
  - Visual impairment [None]

NARRATIVE: CASE EVENT DATE: 20150903
